FAERS Safety Report 5513138-2 (Version None)
Quarter: 2007Q4

REPORT INFORMATION
  Report Type: 
  Country: None (occurrence: None)
  Receive Date: 20071108
  Receipt Date: 20071023
  Transmission Date: 20080405
  Serious: Yes (Hospitalization)
  Sender: FDA-Public Use
  Company Number: S07-AUS-05208-01

PATIENT
  Age: 64 Year
  Sex: Female
  Weight: 62 kg

DRUGS (2)
  1. ESCITALOPRAM [Suspect]
     Indication: DEPRESSION
     Dosage: 10 MG  QD;PO
     Route: 048
     Dates: start: 20070915, end: 20070916
  2. HORMONE REPLACEMENT THERAPY [Concomitant]

REACTIONS (3)
  - DYSURIA [None]
  - FEELING OF BODY TEMPERATURE CHANGE [None]
  - VISION BLURRED [None]
